FAERS Safety Report 5572951-6 (Version None)
Quarter: 2007Q4

REPORT INFORMATION
  Report Type: 
  Country: None (occurrence: None)
  Receive Date: 20071219
  Receipt Date: 20071219
  Transmission Date: 20080405
  Serious: No
  Sender: FDA-Public Use
  Company Number: None

PATIENT
  Age: 46 Year
  Sex: Female
  Weight: 54.4316 kg

DRUGS (11)
  1. ARIPIPRAZOLE [Suspect]
     Dosage: 30MG  PO
     Route: 048
  2. TRILEPTAL [Concomitant]
  3. SEROQUEL [Concomitant]
  4. CYMBALTA [Concomitant]
  5. OXYBUTYNIN CHLORIDE [Concomitant]
  6. SYNTHROID [Concomitant]
  7. LORAZEPAM [Concomitant]
  8. OMEPRAZOLE [Concomitant]
  9. ABILIFY [Concomitant]
  10. MULTI-VITAMIN [Concomitant]
  11. CA W/ VIT D [Concomitant]

REACTIONS (1)
  - RASH [None]
